FAERS Safety Report 9097265 (Version 1)
Quarter: 2013Q1

REPORT INFORMATION
  Report Type: Spontaneous
  Country: DE (occurrence: DE)
  Receive Date: 20130212
  Receipt Date: 20130212
  Transmission Date: 20140127
  Serious: Yes (Other)
  Sender: FDA-Public Use
  Company Number: PHHY2013DE012553

PATIENT
  Sex: Female

DRUGS (6)
  1. HYDROCHLOROTHIAZIDE [Suspect]
  2. CANDESARTAN [Concomitant]
  3. RAMIPRIL [Concomitant]
  4. TORASEMIDE [Concomitant]
  5. PREDNISONE [Concomitant]
  6. ESOMEPRAZOLE [Concomitant]

REACTIONS (2)
  - Oligohydramnios [Recovered/Resolved]
  - Maternal exposure during pregnancy [Unknown]
